FAERS Safety Report 4749515-7 (Version None)
Quarter: 2005Q3

REPORT INFORMATION
  Report Type: 
  Country: None (occurrence: None)
  Receive Date: 20050822
  Receipt Date: 20050811
  Transmission Date: 20060218
  Serious: Yes (Hospitalization)
  Sender: FDA-Public Use
  Company Number: 2005SE04620

PATIENT
  Age: 83 Year
  Sex: Female

DRUGS (5)
  1. BLOPRESS [Suspect]
     Indication: HYPERTENSION
     Route: 048
     Dates: start: 20050701, end: 20050801
  2. AMLODIN [Concomitant]
     Route: 048
  3. NITOROL R [Concomitant]
     Route: 048
  4. LASIX [Concomitant]
     Route: 065
  5. ALOSENN [Concomitant]
     Route: 048

REACTIONS (1)
  - RHABDOMYOLYSIS [None]
